FAERS Safety Report 9358955 (Version 5)
Quarter: 2013Q3

REPORT INFORMATION
  Report Type: Spontaneous
  Country: JP (occurrence: JP)
  Receive Date: 20130620
  Receipt Date: 20130716
  Transmission Date: 20140515
  Serious: Yes (Other)
  Sender: FDA-Public Use
  Company Number: JP-B.I. PHARMACEUTICALS,INC./RIDGEFIELD-2013-BI-17342NB

PATIENT
  Age: 76 Year
  Sex: Male
  Weight: 53.4 kg

DRUGS (17)
  1. SPIRIVA [Suspect]
     Indication: CHRONIC OBSTRUCTIVE PULMONARY DISEASE
     Dosage: 18 MCG
     Route: 055
     Dates: start: 20130220
  2. PH-797804/PLACEBO [Suspect]
     Indication: CHRONIC OBSTRUCTIVE PULMONARY DISEASE
     Route: 048
     Dates: start: 20130401, end: 20130613
  3. SULTANOL [Concomitant]
     Indication: CHRONIC OBSTRUCTIVE PULMONARY DISEASE
     Route: 055
     Dates: start: 20130220
  4. KERLONG [Concomitant]
     Indication: HYPERTENSION
     Dosage: 5 MG
     Route: 048
     Dates: start: 2012
  5. BLOPRESS [Concomitant]
     Indication: HYPERTENSION
     Route: 048
     Dates: start: 2012
  6. URINORM [Concomitant]
     Indication: HYPERLIPIDAEMIA
     Dosage: 25 MG
     Route: 048
     Dates: start: 2012
  7. FLUITRAN [Concomitant]
     Indication: HYPERTENSION
     Dosage: 1 MG
     Route: 048
     Dates: start: 2012
  8. BAYASPIRIN [Concomitant]
     Indication: ANGINA PECTORIS
     Dosage: 100 MG
     Route: 048
     Dates: start: 2012
  9. PANALDINE [Concomitant]
     Indication: ANGINA PECTORIS
     Dosage: 100 MG
     Route: 048
     Dates: start: 2012
  10. NIPOLAZIN [Concomitant]
     Indication: RHINITIS ALLERGIC
     Dosage: 3 MG
     Route: 048
     Dates: start: 2012
  11. TALION [Concomitant]
     Indication: RHINITIS ALLERGIC
     Dosage: 10 MG
     Route: 048
     Dates: start: 2012
  12. LAXOBERON [Concomitant]
     Indication: CONSTIPATION
     Dosage: 2.5 MG
     Route: 048
     Dates: start: 2005
  13. PANTOSIN [Concomitant]
     Indication: CONSTIPATION
     Route: 048
     Dates: start: 2005
  14. MAGNESIUM OXIDE [Concomitant]
     Indication: CONSTIPATION
     Route: 048
     Dates: start: 2005
  15. RHINOCORT [Concomitant]
     Indication: RHINITIS ALLERGIC
     Dosage: 50 MCG
     Route: 045
     Dates: start: 2012
  16. PATELL [Concomitant]
     Indication: MYALGIA
     Route: 062
     Dates: start: 2011
  17. GENTACIN [Concomitant]
     Indication: INFECTION PROPHYLAXIS
     Route: 062
     Dates: start: 20130612

REACTIONS (1)
  - Hepatic function abnormal [Recovered/Resolved]
